FAERS Safety Report 22820648 (Version 14)
Quarter: 2025Q2

REPORT INFORMATION
  Report Type: Spontaneous
  Country: IN (occurrence: IN)
  Receive Date: 20230814
  Receipt Date: 20250606
  Transmission Date: 20250716
  Serious: Yes (Hospitalization, Other)
  Sender: PFIZER
  Company Number: IN-PFIZER INC-PV202300120302

PATIENT
  Age: 65 Year
  Sex: Female

DRUGS (22)
  1. PALBOCICLIB [Suspect]
     Active Substance: PALBOCICLIB
     Indication: Breast cancer metastatic
     Route: 048
  2. AMOROLFINE HYDROCHLORIDE [Concomitant]
     Active Substance: AMOROLFINE HYDROCHLORIDE
     Dosage: UNK, 2X/DAY TRIM YOUR NAILS + THEN APPLY WITH BRUSH TO THE NAIL + UNDERSIDE LET IT DRY FOR 30 SECS
     Route: 061
  3. AUGMENTIN [Concomitant]
     Active Substance: AMOXICILLIN\CLAVULANATE POTASSIUM
     Dosage: 625 MG, AFTER BREAKFAST AND DINNER
     Route: 048
  4. ULTRANURON PLUS [Concomitant]
     Dosage: UNK, TWICE IN A DAY
     Route: 048
  5. TAYO [COLECALCIFEROL] [Concomitant]
     Route: 048
  6. DENOSUMAB [Concomitant]
     Active Substance: DENOSUMAB
     Dates: start: 202212
  7. DENOSUMAB [Concomitant]
     Active Substance: DENOSUMAB
     Route: 058
  8. XGEVA [Concomitant]
     Active Substance: DENOSUMAB
  9. FLUCONAZOLE [Concomitant]
     Active Substance: FLUCONAZOLE
     Dosage: 200 MG, ONCE IN A DAY
     Route: 048
  10. GABAPIN NT [Concomitant]
     Dosage: UNK, ONCE IN A NIGHT/AFTER MEAL
     Route: 048
  11. GABAPENTIN [Concomitant]
     Active Substance: GABAPENTIN
     Dosage: 300 MG, 1X/DAY
     Route: 048
  12. ZORYL MV [Concomitant]
     Dosage: UNK UNK, 2X/DAY
  13. LETROZOLE [Concomitant]
     Active Substance: LETROZOLE
     Indication: Breast cancer metastatic
  14. LETROZOLE [Concomitant]
     Active Substance: LETROZOLE
     Dosage: 2.5 MG, ONCE IN A DAY
     Route: 048
  15. THYROX [Concomitant]
     Dosage: 75 UG, 1X/DAY
  16. TOZAAR H [Concomitant]
     Dosage: UNK, 1X/DAY
  17. ROSEDAY A [Concomitant]
     Dosage: (75/10) OD
  18. PANTOPRAZOLE SODIUM [Concomitant]
     Active Substance: PANTOPRAZOLE SODIUM
     Dosage: 40 MG, TWICE IN A DAY/BEFORE MEALS
     Route: 048
  19. ULTRACET [Concomitant]
     Active Substance: ACETAMINOPHEN\TRAMADOL HYDROCHLORIDE
     Indication: Pain
     Route: 048
  20. ZITEN [TENELIGLIPTIN HYDROBROMIDE] [Concomitant]
     Dosage: 20 MG, 1X/DAY
  21. VILPOWER [Concomitant]
     Dosage: 50 OD
  22. ZOLEDRONIC ACID [Concomitant]
     Active Substance: ZOLEDRONIC ACID
     Indication: Breast cancer metastatic
     Dates: end: 202212

REACTIONS (25)
  - Vitamin D increased [Unknown]
  - Blood glucose decreased [Unknown]
  - Blood creatinine increased [Unknown]
  - White blood cell count decreased [Unknown]
  - Neutrophil count decreased [Unknown]
  - Cataract [Unknown]
  - Neuropathy peripheral [Unknown]
  - Blood triglycerides increased [Unknown]
  - Blood thyroid stimulating hormone increased [Unknown]
  - Haemoglobin decreased [Unknown]
  - Platelet count decreased [Unknown]
  - Conjunctival haemorrhage [Unknown]
  - Hepatic steatosis [Unknown]
  - Renal disorder [Unknown]
  - Umbilical hernia [Unknown]
  - Gastritis [Unknown]
  - Blood glucose increased [Unknown]
  - Constipation [Unknown]
  - Pain in extremity [Unknown]
  - Gait disturbance [Unknown]
  - Cough [Unknown]
  - Dysuria [Unknown]
  - Glycosylated haemoglobin increased [Unknown]
  - Blood cholesterol increased [Unknown]
  - Blood phosphorus increased [Unknown]

NARRATIVE: CASE EVENT DATE: 20230101
